FAERS Safety Report 20899300 (Version 1)
Quarter: 2022Q2

REPORT INFORMATION
  Report Type: Spontaneous
  Country: US (occurrence: US)
  Receive Date: 20220601
  Receipt Date: 20220601
  Transmission Date: 20220721
  Serious: Yes (Hospitalization, Other)
  Sender: FDA-Public Use
  Company Number: US-CADILA HEALTHCARE LIMITED-US-ZYDUS-078634

PATIENT

DRUGS (5)
  1. DEXMEDETOMIDINE [Suspect]
     Active Substance: DEXMEDETOMIDINE
     Indication: Mechanical ventilation complication
     Dosage: 0.2 MICROGRAM/KILOGRAM/HR
     Route: 065
  2. DEXMEDETOMIDINE [Suspect]
     Active Substance: DEXMEDETOMIDINE
     Dosage: 0.6 MICROGRAM/KILOGRAM/HR
     Route: 065
  3. DEXMEDETOMIDINE [Suspect]
     Active Substance: DEXMEDETOMIDINE
     Dosage: 0.2 MICROGRAM/KILOGRAM/HR
     Route: 065
  4. NOREPINEPHRINE [Concomitant]
     Active Substance: NOREPINEPHRINE
     Indication: Product used for unknown indication
     Dosage: UNK
     Route: 065
  5. VASOPRESSIN [Concomitant]
     Active Substance: VASOPRESSIN
     Indication: Product used for unknown indication
     Dosage: UNK
     Route: 065

REACTIONS (2)
  - Cardiac arrest [Recovered/Resolved]
  - Bradycardia [Recovered/Resolved]
